FAERS Safety Report 16611304 (Version 4)
Quarter: 2021Q3

REPORT INFORMATION
  Report Type: Spontaneous
  Country: US (occurrence: US)
  Receive Date: 20190722
  Receipt Date: 20210927
  Transmission Date: 20211014
  Serious: No
  Sender: FDA-Public Use
  Company Number: US-SA-2019SA197329

PATIENT
  Age: 50 Year
  Sex: Female
  Weight: 72 kg

DRUGS (27)
  1. BIOTIN [Concomitant]
     Active Substance: BIOTIN
  2. CALCIUM [Concomitant]
     Active Substance: CALCIUM
  3. DICYCLOMINE [DICYCLOVERINE HYDROCHLORIDE] [Concomitant]
     Active Substance: DICYCLOMINE HYDROCHLORIDE
  4. ESTROGEN/METHYLTES [Concomitant]
     Active Substance: ESTROGENS\METHYLTESTOSTERONE
  5. ALBUTEROL [SALBUTAMOL] [Concomitant]
     Active Substance: ALBUTEROL
  6. UCERIS [Concomitant]
     Active Substance: BUDESONIDE
  7. ADVAIR UNSPEC [Concomitant]
  8. FISH OIL [Concomitant]
     Active Substance: FISH OIL
  9. SYMBICORT [Concomitant]
     Active Substance: BUDESONIDE\FORMOTEROL FUMARATE DIHYDRATE
  10. VITAMIN C [Concomitant]
     Active Substance: ASCORBIC ACID
  11. CEFDINIR. [Concomitant]
     Active Substance: CEFDINIR
  12. MONTELUKAST SODIUM. [Concomitant]
     Active Substance: MONTELUKAST SODIUM
  13. OMEPRAZOLE. [Concomitant]
     Active Substance: OMEPRAZOLE
  14. ALOSETRON [Concomitant]
     Active Substance: ALOSETRON
  15. NITROFURANTOIN. [Concomitant]
     Active Substance: NITROFURANTOIN
  16. DUPIXENT [Suspect]
     Active Substance: DUPILUMAB
     Indication: ASTHMA
     Dosage: 300 MG, QOW
     Route: 058
     Dates: start: 201903
  17. CALCIUM CARBONATE. [Concomitant]
     Active Substance: CALCIUM CARBONATE
  18. FLONASE ALLERGY RELIEF [Concomitant]
     Active Substance: FLUTICASONE PROPIONATE
  19. BUDESONIDE. [Concomitant]
     Active Substance: BUDESONIDE
  20. MAXEPA [Concomitant]
     Active Substance: DOCONEXENT\ICOSAPENT
  21. COVARYX [Concomitant]
     Active Substance: ESTROGENS, ESTERIFIED\METHYLTESTOSTERONE
  22. GLUCOSAMINE SULFATE [Concomitant]
     Active Substance: GLUCOSAMINE SULFATE
  23. ACETAMINOPHEN AND CODEINE [Concomitant]
     Active Substance: ACETAMINOPHEN\CODEINE PHOSPHATE
  24. ARMOUR THYROID [Concomitant]
     Active Substance: THYROID, PORCINE
  25. SERTRALINE [Concomitant]
     Active Substance: SERTRALINE HYDROCHLORIDE
  26. FLORASTOR [LACTOBACILLUS ACIDOPHILUS] [Concomitant]
  27. ZOLOFT [Concomitant]
     Active Substance: SERTRALINE HYDROCHLORIDE

REACTIONS (8)
  - Pain [Unknown]
  - Illness [Unknown]
  - COVID-19 [Recovered/Resolved]
  - Asthma [Unknown]
  - Asthma [Not Recovered/Not Resolved]
  - Dyspnoea [Not Recovered/Not Resolved]
  - Product use issue [Unknown]
  - Product dose omission issue [Unknown]

NARRATIVE: CASE EVENT DATE: 20200302
